FAERS Safety Report 23569923 (Version 1)
Quarter: 2024Q1

REPORT INFORMATION
  Report Type: Spontaneous
  Country: GB (occurrence: GB)
  Receive Date: 20240227
  Receipt Date: 20240227
  Transmission Date: 20240410
  Serious: Yes (Other)
  Sender: FDA-Public Use
  Company Number: None

PATIENT
  Age: 95 Year
  Sex: Male
  Weight: 62 kg

DRUGS (2)
  1. SPIRONOLACTONE [Suspect]
     Active Substance: SPIRONOLACTONE
     Indication: Product used for unknown indication
     Route: 065
     Dates: start: 20240130
  2. POTASSIUM PERMANGANATE [Concomitant]
     Active Substance: POTASSIUM PERMANGANATE
     Dosage: USE AS DIRECTED
     Dates: start: 20240130, end: 20240131

REACTIONS (1)
  - Rash [Recovering/Resolving]

NARRATIVE: CASE EVENT DATE: 20240214
